FAERS Safety Report 8851678 (Version 1)
Quarter: 2012Q4

REPORT INFORMATION
  Report Type: Spontaneous
  Country: US (occurrence: None)
  Receive Date: 20121018
  Receipt Date: 20121018
  Transmission Date: 20130627
  Serious: No
  Sender: FDA-Public Use
  Company Number: None

PATIENT
  Age: 65 Year
  Sex: Female

DRUGS (21)
  1. DOCETAXEL [Suspect]
     Indication: BREAST CANCER METASTATIC
     Route: 042
     Dates: start: 20120731, end: 20120731
  2. EXEMESTANE [Concomitant]
  3. HERCEPTIN [Concomitant]
  4. PERTUZUMAB [Concomitant]
  5. XANAX [Concomitant]
  6. ZOFRAN [Concomitant]
  7. COMPAZINE [Concomitant]
  8. NEULASTA [Concomitant]
  9. NEULASTA [Concomitant]
  10. LEVAQUIN [Concomitant]
  11. ADVIL [Concomitant]
  12. HYDROCODONE [Concomitant]
  13. EFFEXOR [Concomitant]
  14. EMLA [Concomitant]
  15. LOTREL [Concomitant]
  16. PREVACID [Concomitant]
  17. OXYCODONE [Concomitant]
  18. MIRACLE MOUTHWASH [Concomitant]
  19. VITAMIN B6 [Concomitant]
  20. MULTIVITAMIN [Concomitant]
  21. CALCIUM WITH VITAMIN D [Concomitant]

REACTIONS (1)
  - Diarrhoea [None]
